FAERS Safety Report 9196961 (Version 1)
Quarter: 2013Q1

REPORT INFORMATION
  Report Type: Spontaneous
  Country: US (occurrence: US)
  Receive Date: 20130328
  Receipt Date: 20130328
  Transmission Date: 20140127
  Serious: Yes (Other)
  Sender: FDA-Public Use
  Company Number: US-BAYER-2013-036805

PATIENT
  Age: 16 Year
  Sex: Female
  Weight: 50.79 kg

DRUGS (1)
  1. ALEVE TABLET [Suspect]
     Dosage: 30 DF, UNK
     Route: 048
     Dates: start: 20130320, end: 20130320

REACTIONS (2)
  - Overdose [Recovering/Resolving]
  - Expired drug administered [None]
